FAERS Safety Report 15578298 (Version 1)
Quarter: 2018Q4

REPORT INFORMATION
  Report Type: Spontaneous
  Country: US (occurrence: US)
  Receive Date: 20181101
  Receipt Date: 20181101
  Transmission Date: 20190205
  Serious: Yes (Disabling)
  Sender: FDA-Public Use
  Company Number: None

PATIENT
  Age: 23 Year
  Sex: Female
  Weight: 92.7 kg

DRUGS (4)
  1. RABEPRAZOLE [Concomitant]
     Active Substance: RABEPRAZOLE
  2. LEVOFOXACIN 500 MG TABLETS [Suspect]
     Active Substance: LEVOFLOXACIN
     Indication: SINUSITIS
     Dosage: ?          QUANTITY:10 TABLET(S);?
     Route: 048
     Dates: start: 20180830, end: 20180904
  3. CLORTHALIDONE [Concomitant]
  4. BUPROPION. [Concomitant]
     Active Substance: BUPROPION

REACTIONS (6)
  - Cartilage injury [None]
  - Arthralgia [None]
  - Pain in extremity [None]
  - Rotator cuff syndrome [None]
  - Musculoskeletal pain [None]
  - Groin pain [None]

NARRATIVE: CASE EVENT DATE: 20180904
